FAERS Safety Report 5932030-2 (Version None)
Quarter: 2008Q4

REPORT INFORMATION
  Report Type: 
  Country: None (occurrence: None)
  Receive Date: 20081027
  Receipt Date: 20081015
  Transmission Date: 20090506
  Serious: Yes (Other)
  Sender: FDA-Public Use
  Company Number: US-B.I. PHARMACEUTICALS,INC./RIDGEFIELD-2008-DE-06113GD

PATIENT
  Sex: Male

DRUGS (7)
  1. NEVIRAPINE [Suspect]
     Indication: HIV INFECTION
  2. STAVUDINE [Suspect]
     Indication: HIV INFECTION
  3. DIDANOSINE [Suspect]
     Indication: HIV INFECTION
  4. LAMIVUDINE [Suspect]
     Indication: HIV INFECTION
  5. NELFINAVIR [Suspect]
     Indication: HIV INFECTION
  6. ATAZANAVIR SULFATE [Suspect]
     Indication: HIV INFECTION
  7. RITONAVIR [Suspect]
     Indication: HIV INFECTION

REACTIONS (5)
  - EYELID PTOSIS [None]
  - LIPODYSTROPHY ACQUIRED [None]
  - OPHTHALMOPLEGIA [None]
  - PERIPHERAL SENSORY NEUROPATHY [None]
  - SINUS BRADYCARDIA [None]
